FAERS Safety Report 7628004-6 (Version None)
Quarter: 2011Q3

REPORT INFORMATION
  Report Type: 
  Country: None (occurrence: None)
  Receive Date: 20110722
  Receipt Date: 20110712
  Transmission Date: 20111222
  Serious: Yes (Hospitalization, Other)
  Sender: FDA-Public Use
  Company Number: US-BIOGENIDEC-2011BI026109

PATIENT
  Age: 29 Year
  Sex: Female

DRUGS (3)
  1. AVONEX [Suspect]
     Indication: MULTIPLE SCLEROSIS
     Route: 030
     Dates: start: 20000101
  2. AVONEX [Suspect]
     Route: 030
  3. CYMBALTA [Concomitant]

REACTIONS (6)
  - HEADACHE [None]
  - TREMOR [None]
  - INSOMNIA [None]
  - THYROID CANCER [None]
  - COMA [None]
  - ROAD TRAFFIC ACCIDENT [None]
